FAERS Safety Report 21916646 (Version 1)
Quarter: 2023Q1

REPORT INFORMATION
  Report Type: Spontaneous
  Country: CA (occurrence: CA)
  Receive Date: 20230126
  Receipt Date: 20230126
  Transmission Date: 20230418
  Serious: Yes (Hospitalization, Other)
  Sender: FDA-Public Use
  Company Number: CA-TAKEDA-2023TUS008251

PATIENT
  Age: 21 Year
  Sex: Female
  Weight: 45 kg

DRUGS (20)
  1. HUMAN C1-ESTERASE INHIBITOR [Suspect]
     Active Substance: HUMAN C1-ESTERASE INHIBITOR
     Indication: C1 esterase inhibitor decreased
     Dosage: 3000 INTERNATIONAL UNIT, QD
     Route: 058
  2. HUMAN C1-ESTERASE INHIBITOR [Suspect]
     Active Substance: HUMAN C1-ESTERASE INHIBITOR
     Indication: C1 esterase inhibitor decreased
     Dosage: 3000 INTERNATIONAL UNIT, QD
     Route: 058
  3. HUMAN C1-ESTERASE INHIBITOR [Suspect]
     Active Substance: HUMAN C1-ESTERASE INHIBITOR
     Indication: C1 esterase inhibitor decreased
     Dosage: 3000 INTERNATIONAL UNIT, QD
     Route: 058
  4. HUMAN C1-ESTERASE INHIBITOR [Suspect]
     Active Substance: HUMAN C1-ESTERASE INHIBITOR
     Indication: Prophylaxis
     Dosage: 3000 INTERNATIONAL UNIT
     Route: 042
  5. HUMAN C1-ESTERASE INHIBITOR [Suspect]
     Active Substance: HUMAN C1-ESTERASE INHIBITOR
     Indication: Prophylaxis
     Dosage: 3000 INTERNATIONAL UNIT
     Route: 042
  6. HUMAN C1-ESTERASE INHIBITOR [Suspect]
     Active Substance: HUMAN C1-ESTERASE INHIBITOR
     Indication: Prophylaxis
     Dosage: 3000 INTERNATIONAL UNIT
     Route: 042
  7. HUMAN C1-ESTERASE INHIBITOR [Suspect]
     Active Substance: HUMAN C1-ESTERASE INHIBITOR
     Dosage: 1500 INTERNATIONAL UNIT
     Route: 042
  8. HUMAN C1-ESTERASE INHIBITOR [Suspect]
     Active Substance: HUMAN C1-ESTERASE INHIBITOR
     Dosage: 1500 INTERNATIONAL UNIT
     Route: 042
  9. HUMAN C1-ESTERASE INHIBITOR [Suspect]
     Active Substance: HUMAN C1-ESTERASE INHIBITOR
     Dosage: 1500 INTERNATIONAL UNIT
     Route: 042
  10. AMITRIPTYLINE [Concomitant]
     Active Substance: AMITRIPTYLINE
  11. ATIVAN [Concomitant]
     Active Substance: LORAZEPAM
  12. DILAUDID [Concomitant]
     Active Substance: HYDROMORPHONE HYDROCHLORIDE
  13. DOMPERIDONE [Concomitant]
     Active Substance: DOMPERIDONE
  14. HYDROMORPHONE [Concomitant]
     Active Substance: HYDROMORPHONE
  15. OLANZAPINE [Concomitant]
     Active Substance: OLANZAPINE
  16. OXANDROLONE [Concomitant]
     Active Substance: OXANDROLONE
  17. PANCRELIPASE [Concomitant]
     Active Substance: PANCRELIPASE
  18. PANTOPRAZOLE [Concomitant]
     Active Substance: PANTOPRAZOLE
  19. SENOKOT [Concomitant]
     Active Substance: SENNOSIDES
  20. ZOPICLONE [Concomitant]
     Active Substance: ZOPICLONE

REACTIONS (7)
  - Gastrointestinal disorder [Unknown]
  - Stress [Unknown]
  - Dizziness [Unknown]
  - Hereditary angioedema [Unknown]
  - Drug ineffective [Unknown]
  - Product supply issue [Unknown]
  - Off label use [Unknown]
